FAERS Safety Report 4865886-5 (Version None)
Quarter: 2005Q4

REPORT INFORMATION
  Report Type: 
  Country: None (occurrence: None)
  Receive Date: 20051223
  Receipt Date: 20051203
  Transmission Date: 20060501
  Serious: Yes (Hospitalization, Other)
  Sender: FDA-Public Use
  Company Number: PHFR2005GB03958

PATIENT
  Age: 40 Year
  Sex: Male

DRUGS (6)
  1. CLOZARIL [Suspect]
     Indication: SCHIZOPHRENIA
     Dosage: 450 MG/DAY
     Route: 048
     Dates: start: 20030918
  2. CLOZARIL [Suspect]
     Dosage: 900 MG/DAY
     Dates: start: 20051202
  3. VENLAFAXINE HCL [Concomitant]
     Indication: DEPRESSION
     Dosage: 112.5MG/DAY
     Route: 048
  4. VALPROATE SODIUM [Concomitant]
     Indication: CONVULSION
     Dosage: 1G/DAY
     Route: 048
  5. PRIADEL [Concomitant]
     Indication: DEPRESSION
     Dosage: 700MG/DAY
     Route: 048
  6. LAMOTRIGINE [Concomitant]
     Indication: CONVULSION
     Dosage: 100 MG, BID
     Route: 048

REACTIONS (7)
  - ACCIDENTAL OVERDOSE [None]
  - DRUG LEVEL INCREASED [None]
  - DYSARTHRIA [None]
  - SALIVARY HYPERSECRETION [None]
  - SEDATION [None]
  - SOMNOLENCE [None]
  - TACHYCARDIA [None]
